FAERS Safety Report 25660957 (Version 1)
Quarter: 2025Q3

REPORT INFORMATION
  Report Type: Spontaneous
  Country: US (occurrence: US)
  Receive Date: 20250808
  Receipt Date: 20250808
  Transmission Date: 20251021
  Serious: No
  Sender: SANDOZ
  Company Number: US-SANDOZ-SDZ2025US055673

PATIENT
  Sex: Male

DRUGS (1)
  1. NITROFURANTOIN [Suspect]
     Active Substance: NITROFURANTOIN
     Indication: Product used for unknown indication
     Dosage: NITROFURANTOIN 100MG 1000HGC  BO USNDC
     Route: 065

REACTIONS (8)
  - Fatigue [Unknown]
  - Dizziness [Unknown]
  - Polyuria [Unknown]
  - Hypotension [Unknown]
  - Burning sensation [Unknown]
  - Back pain [Unknown]
  - Musculoskeletal chest pain [Unknown]
  - Abdominal pain lower [Unknown]
